FAERS Safety Report 16410079 (Version 1)
Quarter: 2019Q2

REPORT INFORMATION
  Report Type: Spontaneous
  Country: US (occurrence: US)
  Receive Date: 20190502
  Receipt Date: 20190502
  Transmission Date: 20190711
  Serious: Yes (Life-Threatening, Other)
  Sender: FDA-Public Use
  Company Number: None

PATIENT
  Age: 43 Year
  Sex: Female
  Weight: 58.97 kg

DRUGS (3)
  1. FOLLISTIM [Suspect]
     Active Substance: FOLLITROPIN
  2. MENOPUR [Suspect]
     Active Substance: FOLLITROPIN\LUTEINIZING HORMONE
  3. LUPRON [Suspect]
     Active Substance: LEUPROLIDE ACETATE

REACTIONS (3)
  - Ovarian hyperstimulation syndrome [None]
  - Rash [None]
  - Endometrial scratching [None]

NARRATIVE: CASE EVENT DATE: 20170322
